FAERS Safety Report 5226150-8 (Version None)
Quarter: 2007Q1

REPORT INFORMATION
  Report Type: 
  Country: None (occurrence: None)
  Receive Date: 20070129
  Receipt Date: 20070111
  Transmission Date: 20070707
  Serious: Yes (Hospitalization)
  Sender: FDA-Public Use
  Company Number: 30814

PATIENT
  Age: 53 Year
  Sex: Male

DRUGS (3)
  1. FLECAINIDE ACETATE [Suspect]
     Indication: TACHYCARDIA
     Dosage: 200 MG (100 MG, 2 IN 1 DAY (S)) ORAL
     Route: 048
     Dates: start: 19930101
  2. MOPRAL (OMEPRAZOLE) [Concomitant]
  3. INEXIUM (ESOMEPRAZOLE) [Concomitant]

REACTIONS (6)
  - ASTHENIA [None]
  - ATRIAL FIBRILLATION [None]
  - DIARRHOEA [None]
  - HUNGER [None]
  - TEMPERATURE INTOLERANCE [None]
  - WEIGHT DECREASED [None]
